FAERS Safety Report 25845622 (Version 1)
Quarter: 2025Q3

REPORT INFORMATION
  Report Type: Spontaneous
  Country: GB (occurrence: GB)
  Receive Date: 20250925
  Receipt Date: 20250925
  Transmission Date: 20251020
  Serious: Yes (Other)
  Sender: AUROBINDO
  Company Number: GB-MHRA-MED-202509152039270110-ZSFBG

PATIENT
  Age: 35 Year

DRUGS (1)
  1. SERTRALINE [Suspect]
     Active Substance: SERTRALINE HYDROCHLORIDE
     Indication: Product used for unknown indication
     Route: 065
     Dates: start: 20230503

REACTIONS (5)
  - Dizziness [Recovering/Resolving]
  - Anxiety [Recovering/Resolving]
  - Diarrhoea [Recovering/Resolving]
  - Palpitations [Recovering/Resolving]
  - Dyspnoea [Recovered/Resolved]
